FAERS Safety Report 9250836 (Version 4)
Quarter: 2014Q1

REPORT INFORMATION
  Report Type: Report from Study
  Country: DE (occurrence: DE)
  Receive Date: 20130424
  Receipt Date: 20140128
  Transmission Date: 20141002
  Serious: Yes (Hospitalization)
  Sender: FDA-Public Use
  Company Number: PHHY2013DE039847

PATIENT
  Sex: Male
  Weight: 105 kg

DRUGS (11)
  1. METFORMIN, VILDAGLIPTIN [Suspect]
     Indication: TYPE 2 DIABETES MELLITUS
     Dosage: (2000 MG METF AND 100 MG VILD) PER DAY
     Dates: start: 20121009, end: 20121101
  2. STARLIX [Suspect]
     Indication: TYPE 2 DIABETES MELLITUS
     Dosage: 360 MG, PER DAY
     Dates: start: 20060131
  3. GLIMEPIRIDE [Concomitant]
     Indication: DIABETES MELLITUS
     Dosage: 2MG, PER DAY
     Dates: start: 20120724, end: 20121009
  4. ONGLYZA [Concomitant]
     Indication: DIABETES MELLITUS
     Dosage: 5 MG, PER DAY
     Dates: start: 20121009
  5. CLOMIPRAMIN SANDOZ [Concomitant]
     Indication: DEPRESSION
     Dosage: 300 MG, PER DAY
     Dates: start: 2005
  6. ZOPICLONE [Concomitant]
     Indication: BORDERLINE MENTAL IMPAIRMENT
     Dosage: 15 MG, PER DAY
     Dates: start: 2005
  7. DAPAGLIFLOZIN [Concomitant]
     Indication: DIABETES MELLITUS
     Dosage: 10 MG, PER DAY
     Dates: start: 20130205
  8. ATARAX                                  /CAN/ [Concomitant]
     Indication: BORDERLINE MENTAL IMPAIRMENT
     Dosage: 150 MG, PER DAY
     Dates: start: 20090831
  9. BISOPROLOL [Concomitant]
     Dosage: 5 MG, PER DAY
  10. PANTOPRAZOLE [Concomitant]
     Indication: REFLUX GASTRITIS
     Dosage: 40 MG, PER DAY
     Dates: start: 20060105
  11. CEFUROXIME [Concomitant]
     Indication: WOUND INFECTION
     Dosage: 1000 MG, PER DAY
     Dates: start: 20130207

REACTIONS (2)
  - Large intestine perforation [Unknown]
  - Weight decreased [Unknown]
